FAERS Safety Report 14592228 (Version 6)
Quarter: 2018Q2

REPORT INFORMATION
  Report Type: Spontaneous
  Country: IT (occurrence: IT)
  Receive Date: 20180302
  Receipt Date: 20180531
  Transmission Date: 20180711
  Serious: Yes (Other)
  Sender: FDA-Public Use
  Company Number: IT-AMGEN-ITASP2018027615

PATIENT
  Age: 19 Year
  Sex: Female

DRUGS (26)
  1. BLINCYTO [Suspect]
     Active Substance: BLINATUMOMAB
     Indication: ACUTE LYMPHOCYTIC LEUKAEMIA
     Dosage: 1 UNK, CYCLICAL
     Route: 042
     Dates: start: 20161220
  2. IDARUBICIN [Suspect]
     Active Substance: IDARUBICIN
     Indication: ACUTE LYMPHOCYTIC LEUKAEMIA
     Dosage: 12 MG/M2, QD (CYCLIC; DAY1,2 (CYCLE1 AND 2)
     Route: 042
  3. DEXAMETHASONE SODIUM PHOSPHATE. [Suspect]
     Active Substance: DEXAMETHASONE SODIUM PHOSPHATE
     Indication: ACUTE LYMPHOCYTIC LEUKAEMIA
     Dosage: 5 MG/M2, BID (CYCLIC DAY 1-5, 15-19)
     Route: 042
  4. CYTARABINE. [Suspect]
     Active Substance: CYTARABINE
     Dosage: 2000 MG/M2, BID (CYCLIC (QL 2H) CYCLE 7)
     Route: 042
  5. DEXAMETHASONE SODIUM PHOSPHATE. [Suspect]
     Active Substance: DEXAMETHASONE SODIUM PHOSPHATE
     Dosage: 5 MG/M2, BID (CYCLIC DAY 1-5 (CYCLE 2)
     Route: 042
  6. DEXAMETHASONE SODIUM PHOSPHATE. [Suspect]
     Active Substance: DEXAMETHASONE SODIUM PHOSPHATE
     Dosage: 5 MG/M2, BID (CYCLIC DAY 1-5 (CYCLE 2)
     Route: 048
  7. CYCLOPHOSPHAMIDE. [Suspect]
     Active Substance: CYCLOPHOSPHAMIDE
     Dosage: 1000 MG/M2, QD (CYCLIC (CYCLE 2)
     Route: 042
  8. MERCAPTOPURINE. [Suspect]
     Active Substance: MERCAPTOPURINE
     Indication: ACUTE LYMPHOCYTIC LEUKAEMIA
     Dosage: 60 MG/M2, QD (CYCLIC DAY 1-14)
     Route: 048
  9. THIOTEPA. [Suspect]
     Active Substance: THIOTEPA
     Indication: ACUTE LYMPHOCYTIC LEUKAEMIA
     Dosage: 5 MG/KG, (DAY1-2)
     Route: 065
     Dates: start: 20150904
  10. FLUDARABINE [Suspect]
     Active Substance: FLUDARABINE PHOSPHATE
     Indication: ACUTE LYMPHOCYTIC LEUKAEMIA
     Dosage: 50 MG/M2, (DAY 3-4-5)
     Route: 065
     Dates: start: 20150904
  11. METHOTREXATE. [Suspect]
     Active Substance: METHOTREXATE
     Indication: ACUTE LYMPHOCYTIC LEUKAEMIA
     Dosage: 5000 MG/M2, CYCLICAL
     Route: 042
  12. LENOGRASTIM [Suspect]
     Active Substance: LENOGRASTIM
     Dosage: 5 MUG/KG, QD (CYCLIC CYCLE 3)
     Route: 058
  13. PREDNISONE. [Suspect]
     Active Substance: PREDNISONE
     Indication: ACUTE LYMPHOCYTIC LEUKAEMIA
     Dosage: 20 MG/M2, BID ((QL 2 H CYCLIC)
     Route: 048
  14. VINCRISTINE SULFATE. [Suspect]
     Active Substance: VINCRISTINE SULFATE
     Indication: ACUTE LYMPHOCYTIC LEUKAEMIA
     Dosage: 1.4 MG/M2, CYCLICAL (MAX 2 MG)
     Route: 042
  15. FILGRASTIM [Suspect]
     Active Substance: FILGRASTIM
     Dosage: 5 MCG/KG, QD  (CYCLIC (CYCLE 3) AND AT 10 MCG/KG DAILY CYCLIC (CYCLE 7)
     Route: 058
  16. CYTARABINE. [Suspect]
     Active Substance: CYTARABINE
     Dosage: 75 MG/M2, QD ((CYCLE 2), DAY 2-5, 9-12)
     Route: 058
  17. FILGRASTIM [Suspect]
     Active Substance: FILGRASTIM
     Dosage: 5 MCG/KG, QD(CYCLIC (CYCLE 2)
     Route: 058
  18. CYTARABINE. [Suspect]
     Active Substance: CYTARABINE
     Indication: ACUTE LYMPHOCYTIC LEUKAEMIA
     Dosage: 75 MG/M2, QD (CYCLIC (CYCLE 2))
     Route: 042
  19. CYCLOPHOSPHAMIDE. [Suspect]
     Active Substance: CYCLOPHOSPHAMIDE
     Indication: ACUTE LYMPHOCYTIC LEUKAEMIA
     Dosage: 300 MG/M2, QD (CYCLIC DAY -3 TO-1)
     Route: 042
  20. LENOGRASTIM [Suspect]
     Active Substance: LENOGRASTIM
     Indication: ACUTE LYMPHOCYTIC LEUKAEMIA
     Dosage: 5 MUG/KG, QD
     Route: 058
  21. LENOGRASTIM [Suspect]
     Active Substance: LENOGRASTIM
     Dosage: 5 MUG/KG, QD
     Route: 058
  22. INOTUZUMAB OZOGAMICIN [Concomitant]
     Active Substance: INOTUZUMAB OZOGAMICIN
     Dosage: UNK
  23. FILGRASTIM [Suspect]
     Active Substance: FILGRASTIM
     Indication: ACUTE LYMPHOCYTIC LEUKAEMIA
     Dosage: 5 MUG/KG, QD
     Route: 058
  24. LENOGRASTIM [Suspect]
     Active Substance: LENOGRASTIM
     Dosage: 10 MUG/KG, QD (CYCLIC CYCLE 7)
     Route: 058
  25. FOLINIC ACID [Suspect]
     Active Substance: LEUCOVORIN
     Indication: ACUTE LYMPHOCYTIC LEUKAEMIA
     Dosage: UNK
     Route: 042
  26. BUSULFAN. [Suspect]
     Active Substance: BUSULFAN
     Indication: ACUTE LYMPHOCYTIC LEUKAEMIA
     Dosage: 9.6 MG/KG, UNK
     Route: 042
     Dates: start: 20150904

REACTIONS (3)
  - Seizure [Recovered/Resolved]
  - Neurotoxicity [Recovered/Resolved]
  - Acute lymphocytic leukaemia recurrent [Unknown]
